FAERS Safety Report 7968496-6 (Version None)
Quarter: 2011Q4

REPORT INFORMATION
  Report Type: 
  Country: None (occurrence: None)
  Receive Date: 20111209
  Receipt Date: 20111206
  Transmission Date: 20120403
  Serious: Yes (Death, Other)
  Sender: FDA-Public Use
  Company Number: US-JNJFOC-20111203064

PATIENT
  Age: 75 Year
  Sex: Male

DRUGS (15)
  1. ABIRATERONE ACETATE [Suspect]
     Indication: PROSTATE CANCER
     Route: 048
     Dates: start: 20110723, end: 20111024
  2. ATORVASTATIN [Concomitant]
     Route: 048
  3. LEVOSALBUTAMOL [Concomitant]
     Route: 065
  4. FLOMAX [Concomitant]
     Route: 048
  5. PREDNISONE [Suspect]
     Indication: PROSTATE CANCER
     Route: 065
     Dates: start: 20110723, end: 20111024
  6. SUTENT [Suspect]
     Indication: PROSTATE CANCER
     Dosage: 2 WEEKS ON 1 WEEK OFF
     Route: 048
     Dates: start: 20111011
  7. ZOFRAN [Concomitant]
     Dosage: AS NEEDED
     Route: 042
  8. SENOKOT [Concomitant]
     Indication: CONSTIPATION
     Dosage: AS NEEDED
     Route: 048
  9. LOVENOX [Concomitant]
     Route: 058
  10. LEVOFLOXACIN [Concomitant]
     Route: 042
  11. ACETAMINOPHEN [Concomitant]
     Indication: PYREXIA
     Dosage: AS NEEDED
     Route: 048
  12. IPRATROPIUM BROMIDE [Concomitant]
     Dosage: NEBULISED TREATMENT
     Route: 065
  13. OXYCODONE HCL [Concomitant]
     Indication: PAIN
     Dosage: AS NEEDED
     Route: 048
  14. ZOSYN [Concomitant]
     Route: 065
  15. ABIRATERONE ACETATE [Suspect]
     Route: 048

REACTIONS (2)
  - PNEUMONIA [None]
  - HYPOTENSION [None]
